FAERS Safety Report 18689701 (Version 1)
Quarter: 2020Q4

REPORT INFORMATION
  Report Type: Not Available
  Country: None (occurrence: None)
  Receive Date: 20201231
  Receipt Date: 20201231
  Transmission Date: 20210114
  Serious: No
  Sender: FDA-Public Use
  Company Number: US-AKORN PHARMECEUTICALS-2020AKN00552

PATIENT
  Age: 22 Year
  Sex: Male

DRUGS (1)
  1. MYORISAN [Suspect]
     Active Substance: ISOTRETINOIN

REACTIONS (10)
  - Off label use [Recovered/Resolved]
  - Meibomian gland dysfunction [None]
  - Lacrimation decreased [Unknown]
  - Eye swelling [None]
  - Lacrimal disorder [Unknown]
  - Dry eye [Unknown]
  - Conjunctivitis [Unknown]
  - Diplopia [Unknown]
  - Lacrimal gland enlargement [Unknown]
  - Strabismus [Unknown]
